FAERS Safety Report 20935142 (Version 1)
Quarter: 2022Q2

REPORT INFORMATION
  Report Type: Report from Study
  Country: CN (occurrence: CN)
  Receive Date: 20220608
  Receipt Date: 20220608
  Transmission Date: 20220720
  Serious: Yes (Hospitalization, Other)
  Sender: FDA-Public Use
  Company Number: CN-JiaLiang-PSP5178561098547

PATIENT
  Age: 65 Year
  Sex: Male

DRUGS (2)
  1. DIANEAL [Suspect]
     Active Substance: CALCIUM CHLORIDE\DEXTROSE\MAGNESIUM CHLORIDE\SODIUM CHLORIDE\SODIUM LACTATE
     Indication: End stage renal disease
     Dosage: UNK
     Route: 033
     Dates: start: 20211212
  2. UNSPECIFIED INGREDIENT [Suspect]
     Active Substance: UNSPECIFIED INGREDIENT
     Indication: Product used for unknown indication
     Route: 065

REACTIONS (2)
  - Abdominal infection [Not Recovered/Not Resolved]
  - Peritoneal cloudy effluent [Not Recovered/Not Resolved]

NARRATIVE: CASE EVENT DATE: 20220601
